FAERS Safety Report 26084138 (Version 1)
Quarter: 2025Q4

REPORT INFORMATION
  Report Type: Spontaneous
  Country: US (occurrence: US)
  Receive Date: 20251124
  Receipt Date: 20251124
  Transmission Date: 20260118
  Serious: No
  Sender: CHURCH & DWIGHT
  Company Number: US-CHURCH AND DWIGHT CO., INC-2025-CDW-01050

PATIENT
  Age: 19 Month
  Sex: Male

DRUGS (1)
  1. ORAJEL TEETHING (HOMEOPATHIC) [Suspect]
     Active Substance: HOMEOPATHICS
     Indication: Product used for unknown indication
     Dosage: UNKNOWN
     Route: 002

REACTIONS (5)
  - Oral fungal infection [Unknown]
  - Weight decreased [Unknown]
  - Feeding disorder [Unknown]
  - Oral discomfort [Unknown]
  - Stomatitis [Unknown]

NARRATIVE: CASE EVENT DATE: 20250517
